FAERS Safety Report 14211628 (Version 3)
Quarter: 2018Q1

REPORT INFORMATION
  Report Type: Spontaneous
  Country: TW (occurrence: TW)
  Receive Date: 20171121
  Receipt Date: 20180302
  Transmission Date: 20180508
  Serious: Yes (Death, Other)
  Sender: FDA-Public Use
  Company Number: TW-BRISTOL-MYERS SQUIBB COMPANY-BMS-2017-105484

PATIENT
  Age: 43 Year
  Sex: Male
  Weight: 53 kg

DRUGS (1)
  1. OPDIVO [Suspect]
     Active Substance: NIVOLUMAB
     Indication: HEPATOCELLULAR CARCINOMA
     Dosage: 1 MG/KG, Q4WK
     Route: 042
     Dates: start: 20171014, end: 20171015

REACTIONS (6)
  - Hepatic failure [Fatal]
  - Portal hypertensive gastropathy [Unknown]
  - Varices oesophageal [Unknown]
  - Product use in unapproved indication [Unknown]
  - Malignant neoplasm progression [Unknown]
  - Haematochezia [Unknown]

NARRATIVE: CASE EVENT DATE: 201710
